FAERS Safety Report 13777301 (Version 1)
Quarter: 2017Q3

REPORT INFORMATION
  Report Type: Report from Study
  Country: CA (occurrence: CA)
  Receive Date: 20170721
  Receipt Date: 20170721
  Transmission Date: 20171127
  Serious: Yes (Life-Threatening)
  Sender: FDA-Public Use
  Company Number: CA-JNJFOC-20170617829

PATIENT
  Age: 18 Year
  Sex: Male
  Weight: 76 kg

DRUGS (2)
  1. REMICADE [Suspect]
     Active Substance: INFLIXIMAB
     Indication: COLITIS ULCERATIVE
     Dosage: 500 MG OR 6.5 MG/KG (100 MG EXTRA VIAL)
     Route: 042
     Dates: start: 20090922, end: 20170619
  2. REMICADE [Suspect]
     Active Substance: INFLIXIMAB
     Indication: COLITIS ULCERATIVE
     Route: 042

REACTIONS (5)
  - Mass [Not Recovered/Not Resolved]
  - Product use issue [Unknown]
  - Lymphoma [Unknown]
  - Product container issue [Unknown]
  - Off label use [Unknown]

NARRATIVE: CASE EVENT DATE: 20090922
